FAERS Safety Report 9797443 (Version 1)
Quarter: 2014Q1

REPORT INFORMATION
  Report Type: Spontaneous
  Country: RU (occurrence: RU)
  Receive Date: 20140106
  Receipt Date: 20140106
  Transmission Date: 20141002
  Serious: Yes (Hospitalization)
  Sender: FDA-Public Use
  Company Number: PHHY2013RU151967

PATIENT
  Age: 53 Year
  Sex: Male

DRUGS (3)
  1. GLIVEC [Suspect]
     Route: 048
  2. PAPAVERINE [Concomitant]
  3. HELICID [Concomitant]

REACTIONS (2)
  - Duodenitis [Recovering/Resolving]
  - Hernia [Recovering/Resolving]
